FAERS Safety Report 4461279-3 (Version None)
Quarter: 2004Q3

REPORT INFORMATION
  Report Type: 
  Country: None (occurrence: None)
  Receive Date: 20040928
  Receipt Date: 20040305
  Transmission Date: 20050211
  Serious: Yes (Hospitalization)
  Sender: FDA-Public Use
  Company Number: JPKYO-S-20040010

PATIENT
  Age: 63 Year
  Sex: Male

DRUGS (4)
  1. NAVELBINE [Suspect]
     Route: 042
     Dates: start: 20031119
  2. CARVEDILOL [Concomitant]
     Dates: start: 20031225
  3. AMLODIN [Concomitant]
     Dates: start: 20031121
  4. DEPAS [Concomitant]
     Dates: start: 20031119

REACTIONS (3)
  - BLOOD LACTATE DEHYDROGENASE INCREASED [None]
  - DYSPNOEA EXERTIONAL [None]
  - INTERSTITIAL LUNG DISEASE [None]
